FAERS Safety Report 4750944-6 (Version None)
Quarter: 2005Q3

REPORT INFORMATION
  Report Type: 
  Country: None (occurrence: None)
  Receive Date: 20050822
  Receipt Date: 20050809
  Transmission Date: 20060218
  Serious: Yes (Other)
  Sender: FDA-Public Use
  Company Number: 2005107869

PATIENT
  Sex: Male
  Weight: 90.7194 kg

DRUGS (2)
  1. ACTIFED COLD AND SINUS (PARACETAMOL, PSEUDOEPHEDRINE, CLORPHENIRAMINE) [Suspect]
     Indication: SINUS HEADACHE
     Dosage: 4 CAPLETS PER DAY, ORAL
     Route: 048
  2. ATORVASTATIN CALCIUM [Concomitant]

REACTIONS (1)
  - PIGMENTATION DISORDER [None]
